FAERS Safety Report 8832641 (Version 2)
Quarter: 2012Q4

REPORT INFORMATION
  Report Type: 
  Country: US (occurrence: US)
  Receive Date: 20121010
  Receipt Date: 20121107
  Transmission Date: 20130627
  Serious: No
  Sender: FDA-Public Use
  Company Number: US-PFIZER INC-2012247672

PATIENT
  Age: 24 Year
  Sex: Female
  Weight: 72.6 kg

DRUGS (2)
  1. MEDROXYPROGESTERONE ACETATE [Suspect]
     Indication: BIRTH CONTROL
     Dosage: 150 mg, once in 84 days
     Route: 030
     Dates: start: 20120920
  2. DEXILANT [Concomitant]
     Indication: ACID REFLUX (ESOPHAGEAL)
     Dosage: UNK

REACTIONS (3)
  - Injection site discolouration [Not Recovered/Not Resolved]
  - Product quality issue [Unknown]
  - Incorrect dose administered [Unknown]
